FAERS Safety Report 4679513-3 (Version None)
Quarter: 2005Q2

REPORT INFORMATION
  Report Type: 
  Country: None (occurrence: None)
  Receive Date: 20050602
  Receipt Date: 20050524
  Transmission Date: 20051028
  Serious: Yes (Other)
  Sender: FDA-Public Use
  Company Number: PHBS2005BE07525

PATIENT
  Age: 70 Year
  Sex: Female

DRUGS (6)
  1. ZOMETA [Suspect]
     Dates: start: 20020917, end: 20040610
  2. AREDIA [Suspect]
     Route: 065
     Dates: start: 20020423, end: 20020813
  3. PAMIDRONATE DISODIUM [Suspect]
     Dates: start: 20040708, end: 20040930
  4. FEMARA [Concomitant]
     Dates: start: 20020118, end: 20031014
  5. AROMASIN [Concomitant]
     Indication: TUMOUR MARKER INCREASED
     Dates: start: 20031014, end: 20040902
  6. XELODA [Concomitant]
     Indication: MALIGNANT NEOPLASM PROGRESSION
     Dates: start: 20040902

REACTIONS (10)
  - ASEPTIC NECROSIS BONE [None]
  - BONE DISORDER [None]
  - INFLAMMATION [None]
  - METASTASES TO BONE [None]
  - METASTASES TO SKIN [None]
  - OSTEOLYSIS [None]
  - PURULENT DISCHARGE [None]
  - SWELLING [None]
  - TOOTH DISORDER [None]
  - TUMOUR MARKER INCREASED [None]
